FAERS Safety Report 9551763 (Version 1)
Quarter: 2013Q3

REPORT INFORMATION
  Report Type: Spontaneous
  Country: US (occurrence: None)
  Receive Date: 20130724
  Receipt Date: 20130724
  Transmission Date: 20140515
  Serious: Yes (Other)
  Sender: FDA-Public Use
  Company Number: PHEH2013US004795

PATIENT
  Age: 57 Year
  Sex: Female

DRUGS (6)
  1. GLEEVEC [Suspect]
     Indication: CHRONIC MYELOID LEUKAEMIA
     Route: 048
     Dates: start: 20130123, end: 20130223
  2. OMEPRAZOLE MAGNESIUM (OMMEPRAZOLE MAGNESIUM) [Concomitant]
  3. WELLBUTRIN (BUPROPION HYDROCHLORIDE) [Concomitant]
  4. LAMOTRIGINE ER (LAMOTRIGINE) [Concomitant]
  5. ADDERALL XR (AMFETAMINE ASPARTAE, AMFETAMINE SULFATE, DEXAMFETAMINE SACCHARATE, EXAMFETAMINE SULFATE) [Concomitant]
  6. TRAZODONE [Suspect]

REACTIONS (1)
  - White blood cell count decreased [None]
